FAERS Safety Report 4644220-X (Version None)
Quarter: 2005Q2

REPORT INFORMATION
  Report Type: 
  Country: None (occurrence: None)
  Receive Date: 20050331
  Receipt Date: 20050117
  Transmission Date: 20051028
  Serious: No
  Sender: FDA-Public Use
  Company Number: 05P-163-0285434-00

PATIENT
  Age: 53 Year
  Sex: Female
  Weight: 136 kg

DRUGS (31)
  1. HUMIRA [Suspect]
     Indication: RHEUMATOID ARTHRITIS
     Dosage: 40 MG, 1 IN 2 WK, SUBCUTANEOUS
     Route: 058
     Dates: start: 20040201
  2. WARFARIN SODIUM [Concomitant]
  3. FUROSEMIDE [Concomitant]
  4. POTASSIUM CHLORIDE [Concomitant]
  5. RYTHMOL [Concomitant]
  6. BRIMONIDINE TARTRATE [Concomitant]
  7. DORZOLAMIDE HYDROCHLORIDE [Concomitant]
  8. LATANOPROST [Concomitant]
  9. METHOTREXATE [Concomitant]
  10. VICODIN [Concomitant]
  11. CETIRIZINE HCL [Concomitant]
  12. SINGULAIR [Concomitant]
  13. MUCINEX [Concomitant]
  14. CROMOLYN SODIUM [Concomitant]
  15. FLUTICASONE PROPIONATE [Concomitant]
  16. SALBUTAMOL [Concomitant]
  17. MOMETASONE FUROATE [Concomitant]
  18. IPRATROPIUM BROMIDE [Concomitant]
  19. SPIRIVA [Concomitant]
  20. NORTRIPTYLINE HCL [Concomitant]
  21. LUECOVOR [Concomitant]
  22. FOLIC ACID [Concomitant]
  23. ESOMEPRAZOLE [Concomitant]
  24. CLONAZEPAM [Concomitant]
  25. PREDNISONE [Concomitant]
  26. ONE A DAY [Concomitant]
  27. ASCORBIC ACID [Concomitant]
  28. RIBOFLAVIN TAB [Concomitant]
  29. GARLIC [Concomitant]
  30. CALCIUM GLUCONATE [Concomitant]
  31. UBIDECARENONE [Concomitant]

REACTIONS (2)
  - INJECTION SITE PRURITUS [None]
  - INJECTION SITE RASH [None]
